FAERS Safety Report 16807933 (Version 1)
Quarter: 2020Q3

REPORT INFORMATION
  Report Type: Spontaneous
  Country: DE (occurrence: DE)
  Receive Date: 20190915
  Receipt Date: 20190915
  Transmission Date: 20201104
  Serious: Yes (Other)
  Sender: FDA-Public Use
  Company Number: DE-TEVA-2019-DE-1108926

PATIENT
  Sex: Male
  Weight: 88 kg

DRUGS (11)
  1. RITUXIMAB. [Suspect]
     Active Substance: RITUXIMAB
     Indication: DIFFUSE LARGE B-CELL LYMPHOMA
     Dosage: UNK UNK, UNKNOWN FREQ. (1ST LINE, R?CHOP 6 CYCLES)
     Route: 065
     Dates: start: 201808, end: 201901
  2. RITUXIMAB. [Suspect]
     Active Substance: RITUXIMAB
     Dosage: UNK UNK, UNKNOWN FREQ. (2ND LINE, R?DHAP 2 CYCLES)
     Route: 065
     Dates: start: 201902, end: 201903
  3. POLATUZUMAB VEDOTIN. [Suspect]
     Active Substance: POLATUZUMAB VEDOTIN
     Indication: DIFFUSE LARGE B-CELL LYMPHOMA
     Dosage: UNK UNK, UNKNOWN FREQ. (1ST LINE, R?CHOP 6 CYCLES)
     Route: 065
     Dates: start: 201808, end: 201901
  4. BENDAMUSTINE HYDROCHLORIDE. [Suspect]
     Active Substance: BENDAMUSTINE HYDROCHLORIDE
     Indication: DIFFUSE LARGE B-CELL LYMPHOMA
     Dosage: UNK UNK, CYCLIC (1ST LINE, R?CHOP 6 CYCLES)
     Route: 042
     Dates: start: 201808, end: 201901
  5. DEXAMETHASONE. [Suspect]
     Active Substance: DEXAMETHASONE
     Indication: DIFFUSE LARGE B-CELL LYMPHOMA
     Dosage: UNK UNK, UNKNOWN FREQ. (1ST LINE, R?CHOP 6 CYCLES)
     Route: 065
     Dates: start: 201808, end: 201901
  6. CYCLOPHOSPHAMIDE. [Suspect]
     Active Substance: CYCLOPHOSPHAMIDE
     Indication: DIFFUSE LARGE B-CELL LYMPHOMA
     Dosage: UNK UNK, UNKNOWN FREQ. (1ST LINE, R?CHOP 6 CYCLES)
     Route: 065
     Dates: start: 201808, end: 201901
  7. THALIDOMIDE [Suspect]
     Active Substance: THALIDOMIDE
     Indication: DIFFUSE LARGE B-CELL LYMPHOMA
     Dosage: UNK UNK, UNKNOWN FREQ. (1ST LINE, R?CHOP 6 CYCLES )
     Route: 065
     Dates: start: 201808, end: 201901
  8. AZATHIOPRINE. [Suspect]
     Active Substance: AZATHIOPRINE
     Indication: DIFFUSE LARGE B-CELL LYMPHOMA
     Dosage: UNK UNK, UNKNOWN FREQ. (1ST LINE, R?CHOP 6 CYCLES)
     Route: 065
     Dates: start: 201808, end: 201901
  9. METHOTREXATE. [Suspect]
     Active Substance: METHOTREXATE
     Indication: DIFFUSE LARGE B-CELL LYMPHOMA
     Dosage: UNK UNK, UNKNOWN FREQ. (1ST LINE, R?CHOP 6 CYCLES)
     Route: 065
     Dates: start: 201808, end: 201901
  10. RITUXIMAB. [Suspect]
     Active Substance: RITUXIMAB
     Dosage: UNK UNK, UNKNOWN FREQ. (FURTHER LINES, R?ICE 1 CYCLE)
     Route: 065
     Dates: start: 201904
  11. RITUXIMAB. [Suspect]
     Active Substance: RITUXIMAB
     Dosage: UNK UNK, UNKNOWN FREQ. (FURTHER LINES, GEM/OXALIPLATIN 1 CYCLE)
     Route: 065
     Dates: start: 201905

REACTIONS (3)
  - Platelet count decreased [Unknown]
  - Product use in unapproved indication [Unknown]
  - Haemoglobin decreased [Unknown]
